FAERS Safety Report 6934418-X (Version None)
Quarter: 2010Q3

REPORT INFORMATION
  Report Type: 
  Country: None (occurrence: None)
  Receive Date: 20100820
  Receipt Date: 20100811
  Transmission Date: 20110219
  Serious: Yes (Hospitalization)
  Sender: FDA-Public Use
  Company Number: B0653510A

PATIENT
  Sex: Male

DRUGS (5)
  1. FLOLAN [Suspect]
     Indication: ESSENTIAL HYPERTENSION
     Route: 042
     Dates: start: 20100121
  2. ZYLORIC [Suspect]
     Dosage: 100MG PER DAY
     Route: 048
     Dates: end: 20100510
  3. WARFARIN [Suspect]
     Indication: ESSENTIAL HYPERTENSION
     Route: 048
     Dates: start: 20100410, end: 20100420
  4. WARFARIN [Suspect]
     Dosage: 1.5MG PER DAY
     Route: 048
     Dates: start: 20100421, end: 20100510
  5. REVATIO [Suspect]
     Indication: ESSENTIAL HYPERTENSION
     Dosage: 60MG PER DAY
     Route: 048
     Dates: start: 20091001

REACTIONS (9)
  - ANTI-PLATELET ANTIBODY [None]
  - CARDIAC FAILURE [None]
  - DEVICE RELATED INFECTION [None]
  - DYSPNOEA EXERTIONAL [None]
  - EOSINOPHILIA [None]
  - HELICOBACTER INFECTION [None]
  - PLATELET COUNT DECREASED [None]
  - PYREXIA [None]
  - RASH [None]
